FAERS Safety Report 5623834-4 (Version None)
Quarter: 2008Q1

REPORT INFORMATION
  Report Type: 
  Country: None (occurrence: None)
  Receive Date: 20080207
  Receipt Date: 20080122
  Transmission Date: 20080703
  Serious: Yes (Death, Life-Threatening, Hospitalization)
  Sender: FDA-Public Use
  Company Number: PAR_02080_2008

PATIENT
  Age: 25 Year
  Sex: Male

DRUGS (12)
  1. IBUPROFEN (IBUPROFEN) ZIDOVUDINE (NOT SPECIFIED) [Suspect]
     Indication: PAIN IN EXTREMITY
     Dosage: DF,
  2. CIPROFLOXACIN [Suspect]
     Indication: CHEST DISCOMFORT
     Dosage: DF
  3. CLARITHROMYCIN [Suspect]
     Indication: CHEST DISCOMFORT
     Dosage: DF
  4. COMBIVIR [Suspect]
     Indication: ACQUIRED IMMUNODEFICIENCY SYNDROME
     Dosage: DF
  5. EFAVIRENZ [Suspect]
     Indication: ACQUIRED IMMUNODEFICIENCY SYNDROME
     Dosage: DF,
  6. CO-TRIMOXAZOLE (CO-TRIMOXAZOLE) [Suspect]
     Indication: PNEUMOCYSTIS JIROVECI PNEUMONIA
     Dosage: DF
  7. CO-TRIMOXAZOLE (CO-TRIMOXAZOLE) [Suspect]
     Indication: PROPHYLAXIS
     Dosage: DF
  8. NEVIRAPINE [Suspect]
     Indication: ACQUIRED IMMUNODEFICIENCY SYNDROME
     Dosage: DF
  9. TENOFOVIR (TENOFOVIR) [Suspect]
     Indication: ACQUIRED IMMUNODEFICIENCY SYNDROME
     Dosage: DF,
  10. LAMIVUDINE [Suspect]
     Indication: ACQUIRED IMMUNODEFICIENCY SYNDROME
     Dosage: DF
  11. LOPERAMIDE HYDROCHLORIDE [Concomitant]
  12. BACTRIM [Concomitant]

REACTIONS (14)
  - AGITATION [None]
  - ALANINE AMINOTRANSFERASE INCREASED [None]
  - BLOOD ALBUMIN DECREASED [None]
  - BLOOD ALKALINE PHOSPHATASE INCREASED [None]
  - BLOOD BILIRUBIN INCREASED [None]
  - CONFUSIONAL STATE [None]
  - COUGH [None]
  - HAEMOGLOBIN DECREASED [None]
  - PAIN IN EXTREMITY [None]
  - PYREXIA [None]
  - SCLERAL DISCOLOURATION [None]
  - SEPSIS [None]
  - VANISHING BILE DUCT SYNDROME [None]
  - VOMITING [None]
